FAERS Safety Report 18496015 (Version 2)
Quarter: 2021Q1

REPORT INFORMATION
  Report Type: Spontaneous
  Country: US (occurrence: US)
  Receive Date: 20201112
  Receipt Date: 20210108
  Transmission Date: 20210419
  Serious: Yes (Death, Hospitalization, Other)
  Sender: FDA-Public Use
  Company Number: US-PFIZER INC-2020443602

PATIENT
  Age: 66 Year
  Sex: Female

DRUGS (2)
  1. INLYTA [Suspect]
     Active Substance: AXITINIB
     Dosage: 5 MG
     Dates: start: 20201022, end: 20201031
  2. INLYTA [Suspect]
     Active Substance: AXITINIB
     Dosage: UNK
     Dates: start: 20201105, end: 20210103

REACTIONS (6)
  - Renal failure [Fatal]
  - Myalgia [Unknown]
  - Pneumonia [Unknown]
  - Constipation [Unknown]
  - Dyspnoea [Unknown]
  - Dry mouth [Not Recovered/Not Resolved]
